FAERS Safety Report 5815280-5 (Version None)
Quarter: 2008Q3

REPORT INFORMATION
  Report Type: 
  Country: None (occurrence: None)
  Receive Date: 20080718
  Receipt Date: 20080708
  Transmission Date: 20090109
  Serious: Yes (Hospitalization)
  Sender: FDA-Public Use
  Company Number: US-ABBOTT-08P-163-0461371-00

PATIENT
  Sex: Female
  Weight: 85.352 kg

DRUGS (15)
  1. HUMIRA [Suspect]
     Indication: COLITIS ULCERATIVE
     Route: 058
     Dates: start: 20070801, end: 20080402
  2. MESALAMINE [Concomitant]
     Indication: COLITIS ULCERATIVE
     Route: 048
     Dates: start: 20010101
  3. PANTOPRAZOLE SODIUM [Concomitant]
     Indication: DRUG USE FOR UNKNOWN INDICATION
     Route: 048
     Dates: start: 20010101
  4. ATENOLOL [Concomitant]
     Indication: DRUG USE FOR UNKNOWN INDICATION
     Route: 048
     Dates: start: 20000101
  5. LAVAZA [Concomitant]
     Indication: BLOOD TRIGLYCERIDES INCREASED
     Route: 048
     Dates: start: 20070101
  6. NORTRIPTYLINE HCL [Concomitant]
     Indication: MIGRAINE
     Route: 048
  7. ALPRAZOLAM [Concomitant]
     Indication: DRUG USE FOR UNKNOWN INDICATION
     Route: 048
  8. DICYCLOMINE HCL [Concomitant]
     Indication: COLITIS ULCERATIVE
     Route: 048
  9. BENADRYL [Concomitant]
     Indication: RASH
     Route: 048
  10. LIDOCAINE [Concomitant]
     Indication: SCIATICA
     Route: 062
  11. ACETAMINOPHEN [Concomitant]
     Indication: ARTHRITIS
     Route: 048
  12. OS-CAL [Concomitant]
     Indication: MINERAL SUPPLEMENTATION
     Route: 048
  13. IMODIUM [Concomitant]
     Indication: COLITIS ULCERATIVE
     Route: 048
  14. MULTI-VITAMIN [Concomitant]
     Indication: VITAMIN SUPPLEMENTATION
     Route: 048
  15. OSTEOBIFLEX [Concomitant]
     Indication: OSTEOARTHRITIS
     Route: 048

REACTIONS (3)
  - BLOOD TRIGLYCERIDES INCREASED [None]
  - MELANOCYTIC NAEVUS [None]
  - OSTEOARTHRITIS [None]
